FAERS Safety Report 7383419-9 (Version None)
Quarter: 2011Q1

REPORT INFORMATION
  Report Type: 
  Country: None (occurrence: None)
  Receive Date: 20110325
  Receipt Date: 20110325
  Transmission Date: 20110831
  Serious: Yes (Hospitalization)
  Sender: FDA-Public Use
  Company Number: None

PATIENT
  Age: 90 Year
  Sex: Female
  Weight: 35.6 kg

DRUGS (11)
  1. OXYCODONE [Suspect]
     Indication: HERPES ZOSTER
     Dosage: 2.5 MG 5 MG Q4HR PRN PO RECENT
     Route: 048
  2. DIGOXIN [Concomitant]
  3. GABAPENTIN [Concomitant]
  4. METOPROLOL SUCC XR [Concomitant]
  5. APAP TAB [Concomitant]
  6. ALLOPURINOL [Concomitant]
  7. AMLOCLIPINE [Concomitant]
  8. LISINOPRIL AND HYDROCHLOROTHIAZIDE [Concomitant]
  9. COLCHICINE [Concomitant]
  10. PREVACID [Concomitant]
  11. LIDODERM [Concomitant]

REACTIONS (2)
  - TOXIC ENCEPHALOPATHY [None]
  - RENAL FAILURE ACUTE [None]
